FAERS Safety Report 20725161 (Version 2)
Quarter: 2022Q2

REPORT INFORMATION
  Report Type: Spontaneous
  Country: FR (occurrence: FR)
  Receive Date: 20220419
  Receipt Date: 20220505
  Transmission Date: 20220721
  Serious: Yes (Hospitalization)
  Sender: FDA-Public Use
  Company Number: None

PATIENT
  Age: 71 Year
  Sex: Female
  Weight: 90 kg

DRUGS (3)
  1. CERTICAN [Suspect]
     Active Substance: EVEROLIMUS
     Indication: Renal transplant
     Dosage: 1 MG, QD
     Route: 048
     Dates: start: 201404
  2. PREDNISOLONE SODIUM METAZOATE [Suspect]
     Active Substance: PREDNISOLONE SODIUM METAZOATE
     Indication: Renal transplant
     Dosage: 1 MG, QD
     Route: 048
     Dates: start: 201404
  3. CELLCEPT [Suspect]
     Active Substance: MYCOPHENOLATE MOFETIL
     Indication: Renal transplant
     Dosage: 1 G, QD
     Route: 048
     Dates: start: 201404

REACTIONS (1)
  - Vaccination failure [Recovered/Resolved]

NARRATIVE: CASE EVENT DATE: 20220304
